FAERS Safety Report 13916061 (Version 1)
Quarter: 2017Q3

REPORT INFORMATION
  Report Type: Spontaneous
  Country: US (occurrence: US)
  Receive Date: 20170829
  Receipt Date: 20170829
  Transmission Date: 20171127
  Serious: No
  Sender: FDA-Public Use
  Company Number: US-MYLANLABS-2017M1027571

PATIENT
  Age: 69 Year
  Sex: Male

DRUGS (1)
  1. MIACALCIN [Suspect]
     Active Substance: CALCITONIN SALMON
     Indication: PRODUCT USED FOR UNKNOWN INDICATION
     Dosage: 1.2 ML, QD
     Route: 042
     Dates: start: 20170502, end: 20170502

REACTIONS (2)
  - No adverse event [Unknown]
  - Incorrect route of drug administration [Recovered/Resolved]

NARRATIVE: CASE EVENT DATE: 20170502
